FAERS Safety Report 15459375 (Version 2)
Quarter: 2018Q4

REPORT INFORMATION
  Report Type: Report from Study
  Country: GB (occurrence: GB)
  Receive Date: 20181003
  Receipt Date: 20181106
  Transmission Date: 20190204
  Serious: Yes (Hospitalization)
  Sender: FDA-Public Use
  Company Number: PHHY2018GB115250

PATIENT
  Age: 86 Year
  Sex: Female

DRUGS (2)
  1. ERELZI [Suspect]
     Active Substance: ETANERCEPT-SZZS
     Indication: RHEUMATOID ARTHRITIS
     Dosage: 50 MG, UNK
     Route: 058
  2. ERELZI [Suspect]
     Active Substance: ETANERCEPT-SZZS
     Dosage: UNK
     Route: 065
     Dates: start: 20180924

REACTIONS (6)
  - Confusional state [Not Recovered/Not Resolved]
  - Dizziness [Not Recovered/Not Resolved]
  - Malaise [Not Recovered/Not Resolved]
  - Pain [Not Recovered/Not Resolved]
  - Nausea [Unknown]
  - Dysarthria [Not Recovered/Not Resolved]

NARRATIVE: CASE EVENT DATE: 20180917
